FAERS Safety Report 21323287 (Version 1)
Quarter: 2022Q3

REPORT INFORMATION
  Report Type: Spontaneous
  Country: US (occurrence: None)
  Receive Date: 20220909
  Receipt Date: 20220909
  Transmission Date: 20221027
  Serious: Yes (Other)
  Sender: FDA-Public Use
  Company Number: None

PATIENT
  Age: 56 Year
  Sex: Female
  Weight: 85.05 kg

DRUGS (1)
  1. ABILIFY MAINTENA [Suspect]
     Active Substance: ARIPIPRAZOLE
     Route: 030

REACTIONS (19)
  - Decreased appetite [None]
  - Feeling abnormal [None]
  - Skin disorder [None]
  - Dry skin [None]
  - Ear disorder [None]
  - Nasal disorder [None]
  - Sinus disorder [None]
  - Dyspnoea [None]
  - Swollen tongue [None]
  - Dysphagia [None]
  - Ageusia [None]
  - Tooth disorder [None]
  - Product complaint [None]
  - Unevaluable event [None]
  - Limb discomfort [None]
  - Anxiety [None]
  - Blood glucose decreased [None]
  - Loss of personal independence in daily activities [None]
  - Insomnia [None]

NARRATIVE: CASE EVENT DATE: 20210529
